FAERS Safety Report 6679655 (Version 14)
Quarter: 2013Q1

REPORT INFORMATION
  Report Type: Spontaneous
  Country: US (occurrence: US)
  Receive Date: 20080624
  Receipt Date: 20130307
  Transmission Date: 20140127
  Serious: Yes (Death, Hospitalization, Congenital Anomaly, Other)
  Sender: FDA-Public Use
  Company Number: US-PFIZER INC-2008049876

PATIENT
  Sex: Female
  Weight: 2.6 kg

DRUGS (14)
  1. ZOLOFT [Suspect]
     Indication: DEPRESSION
     Dosage: 50 MG, 1X/DAY
     Route: 064
  2. ZOLOFT [Suspect]
     Indication: ANXIETY
  3. LEXAPRO [Suspect]
     Dosage: 10 MG, 1X/DAY
     Route: 064
     Dates: start: 20021228
  4. PRENATAL VITAMINS [Concomitant]
     Dosage: UNK
     Route: 064
     Dates: start: 20030629
  5. REGLAN [Concomitant]
     Dosage: 10 MG, UNK
     Route: 064
     Dates: start: 20030811
  6. ZYRTEC [Concomitant]
     Dosage: 10 MG, UNK
     Route: 064
     Dates: start: 20030902
  7. BENADRYL [Concomitant]
     Dosage: UNK
     Route: 064
  8. TYLENOL [Concomitant]
     Dosage: UNK
     Route: 064
  9. ROBITUSSIN ^ROBINS^ [Concomitant]
     Dosage: UNK
     Route: 064
  10. Z-PAK [Concomitant]
     Dosage: UNK
     Route: 064
     Dates: start: 20031104
  11. KAOPECTATE [Concomitant]
     Dosage: UNK
     Route: 064
  12. DARVOCET [Concomitant]
     Dosage: UNK
     Route: 064
  13. CEPHALEXIN [Concomitant]
     Dosage: 500 MG, UNK
     Route: 064
     Dates: start: 20030923
  14. ZITHROMAX [Concomitant]
     Dosage: 250 MG, UNK
     Route: 064
     Dates: start: 20031104

REACTIONS (12)
  - Foetal exposure during pregnancy [Fatal]
  - Multiple congenital abnormalities [Fatal]
  - Mitral valve hypoplasia [Unknown]
  - Aortic valve stenosis [Unknown]
  - Persistent foetal circulation [Unknown]
  - Atrioventricular septal defect [Unknown]
  - Patent ductus arteriosus [Unknown]
  - Hypoplastic left heart syndrome [Unknown]
  - Right ventricular hypertrophy [Unknown]
  - Hepatic congestion [Unknown]
  - Renal tubular necrosis [Unknown]
  - Lung disorder [Unknown]
